FAERS Safety Report 7934183-3 (Version None)
Quarter: 2011Q4

REPORT INFORMATION
  Report Type: 
  Country: None (occurrence: None)
  Receive Date: 20111122
  Receipt Date: 20111115
  Transmission Date: 20120403
  Serious: Yes (Other)
  Sender: FDA-Public Use
  Company Number: PHHY2011DE098367

PATIENT
  Sex: Male

DRUGS (4)
  1. CLOZAPINE [Suspect]
     Indication: SCHIZOPHRENIA
     Dosage: 225 MG, QD
     Route: 048
     Dates: start: 20110101
  2. HALDOL [Concomitant]
     Dosage: 1 DF, QD
  3. METOPROLOL TARTRATE [Concomitant]
     Indication: TACHYCARDIA
     Dosage: UNK UKN, UNK
  4. LORAZEPAM [Concomitant]
     Dosage: 3 DF, QD

REACTIONS (7)
  - EXTRASYSTOLES [None]
  - EOSINOPHILIA [None]
  - TACHYCARDIA [None]
  - ELECTROCARDIOGRAM QT INTERVAL ABNORMAL [None]
  - EJECTION FRACTION DECREASED [None]
  - INFLAMMATION [None]
  - CARDIAC FAILURE [None]
